FAERS Safety Report 11717823 (Version 1)
Quarter: 2015Q4

REPORT INFORMATION
  Report Type: Spontaneous
  Country: US (occurrence: None)
  Receive Date: 20151106
  Receipt Date: 20151106
  Transmission Date: 20160304
  Serious: No
  Sender: FDA-Public Use
  Company Number: 15AE053

PATIENT
  Sex: Male

DRUGS (1)
  1. KIRKLAND DOXYLAMINE SUCCINATE 25MG TABLETS [Suspect]
     Active Substance: DOXYLAMINE SUCCINATE
     Indication: SLEEP DISORDER
     Dosage: 1 AT NIGHT

REACTIONS (3)
  - Abnormal dreams [None]
  - Asthenopia [None]
  - Feeling abnormal [None]

NARRATIVE: CASE EVENT DATE: 201510
